FAERS Safety Report 6676173-7 (Version None)
Quarter: 2010Q2

REPORT INFORMATION
  Report Type: 
  Country: None (occurrence: None)
  Receive Date: 20100412
  Receipt Date: 20100405
  Transmission Date: 20101027
  Serious: Yes (Hospitalization)
  Sender: FDA-Public Use
  Company Number: US-SP-2010-00638

PATIENT
  Sex: Male

DRUGS (3)
  1. THERACYS [Suspect]
     Indication: BLADDER CANCER
     Dosage: INSTILLATION #7
     Route: 043
     Dates: start: 20100119, end: 20100119
  2. THERACYS [Suspect]
     Dosage: INSTILLATION # 4-6
     Route: 065
     Dates: start: 20090908, end: 20090922
  3. THERACYS [Suspect]
     Dosage: INSTILLATION # 1-3
     Route: 065
     Dates: start: 20090811, end: 20090901

REACTIONS (2)
  - PNEUMONIA [None]
  - SEPSIS [None]
